FAERS Safety Report 4746200-2 (Version None)
Quarter: 2005Q3

REPORT INFORMATION
  Report Type: 
  Country: None (occurrence: None)
  Receive Date: 20050816
  Receipt Date: 20050711
  Transmission Date: 20060218
  Serious: Yes (Disabling)
  Sender: FDA-Public Use
  Company Number: US-MERCK-0507USA01490

PATIENT
  Age: 48 Year
  Sex: Male
  Weight: 75 kg

DRUGS (8)
  1. VIOXX [Suspect]
     Indication: NERVE COMPRESSION
     Route: 048
     Dates: start: 20000101, end: 20040101
  2. ZOCOR [Concomitant]
     Route: 065
  3. BENICAR [Concomitant]
     Route: 065
  4. FLEXERIL [Concomitant]
     Route: 065
  5. VICODIN [Concomitant]
     Route: 065
  6. PLAVIX [Concomitant]
     Route: 065
  7. ULTRACET [Concomitant]
     Route: 065
  8. HYDROCHLOROTHIAZIDE [Concomitant]
     Route: 065

REACTIONS (5)
  - CEREBROVASCULAR ACCIDENT [None]
  - DEPRESSION [None]
  - PAIN IN EXTREMITY [None]
  - SUICIDAL IDEATION [None]
  - TRANSIENT ISCHAEMIC ATTACK [None]
